FAERS Safety Report 8902499 (Version 14)
Quarter: 2014Q2

REPORT INFORMATION
  Report Type: Report from Study
  Country: CA (occurrence: CA)
  Receive Date: 20121112
  Receipt Date: 20140520
  Transmission Date: 20141212
  Serious: Yes (Other)
  Sender: FDA-Public Use
  Company Number: CA-ROCHE-1153522

PATIENT
  Age: 61 Year
  Sex: Female
  Weight: 66.7 kg

DRUGS (14)
  1. RITUXAN [Suspect]
     Indication: RHEUMATOID ARTHRITIS
     Dosage: LAST DOSE ON 25/MAR/2014
     Route: 042
     Dates: start: 20110824
  2. METHOTREXATE [Suspect]
     Indication: PRODUCT USED FOR UNKNOWN INDICATION
     Route: 058
     Dates: end: 201202
  3. SYNTHROID [Concomitant]
  4. COZAAR [Concomitant]
     Indication: HYPERTENSION
  5. CORGARD (NADOLOL) [Concomitant]
     Indication: HYPERTENSION
  6. PREDNISONE [Concomitant]
     Indication: HYPERTENSION
  7. NEXIUM [Concomitant]
  8. VITAMIN B12 [Concomitant]
  9. ACTONEL [Concomitant]
  10. LIPITOR [Concomitant]
  11. DIPHENHYDRAMINE HCL [Concomitant]
     Indication: PREMEDICATION
     Route: 048
     Dates: start: 20110824
  12. ACETAMINOPHEN [Concomitant]
     Indication: PREMEDICATION
     Route: 048
     Dates: start: 20110824
  13. METHYLPREDNISOLONE [Concomitant]
     Indication: PREMEDICATION
     Route: 042
     Dates: start: 20110824
  14. LOTEMAX [Concomitant]
     Indication: GLAUCOMA

REACTIONS (14)
  - Memory impairment [Not Recovered/Not Resolved]
  - Influenza [Not Recovered/Not Resolved]
  - Influenza [Recovering/Resolving]
  - Stress [Unknown]
  - Blood pressure increased [Unknown]
  - Cough [Not Recovered/Not Resolved]
  - Arthralgia [Unknown]
  - Nasopharyngitis [Not Recovered/Not Resolved]
  - Urinary tract infection [Not Recovered/Not Resolved]
  - Throat irritation [Recovered/Resolved]
  - Eye pain [Unknown]
  - Malaise [Unknown]
  - Glaucoma [Unknown]
  - Chest pain [Unknown]
